FAERS Safety Report 6387610-X (Version None)
Quarter: 2009Q4

REPORT INFORMATION
  Report Type: 
  Country: None (occurrence: None)
  Receive Date: 20091005
  Receipt Date: 20090925
  Transmission Date: 20100525
  Serious: Yes (Hospitalization)
  Sender: FDA-Public Use
  Company Number: US-JNJFOC-20091000119

PATIENT
  Sex: Female

DRUGS (3)
  1. DURAGESIC-100 [Suspect]
     Indication: NEURALGIA
     Route: 062
  2. AMBIEN CR [Suspect]
     Indication: SLEEP DISORDER
     Route: 065
  3. XANAX [Concomitant]
     Indication: ANXIETY
     Route: 048

REACTIONS (1)
  - ABNORMAL BEHAVIOUR [None]
